FAERS Safety Report 6981230-1 (Version None)
Quarter: 2010Q3

REPORT INFORMATION
  Report Type: 
  Country: None (occurrence: None)
  Receive Date: 20100914
  Receipt Date: 20100909
  Transmission Date: 20110219
  Serious: No
  Sender: FDA-Public Use
  Company Number: US-PFIZER INC-2010114865

PATIENT
  Sex: Male
  Weight: 129.25 kg

DRUGS (1)
  1. LIPITOR [Suspect]
     Indication: BLOOD CHOLESTEROL INCREASED
     Dosage: 80 MG DAILY
     Route: 048
     Dates: start: 20100906

REACTIONS (1)
  - MYALGIA [None]
